FAERS Safety Report 4711112-7 (Version None)
Quarter: 2005Q3

REPORT INFORMATION
  Report Type: 
  Country: None (occurrence: None)
  Receive Date: 20050708
  Receipt Date: 20050629
  Transmission Date: 20060218
  Serious: Yes (Other)
  Sender: FDA-Public Use
  Company Number: 2005-07-0038

PATIENT
  Age: 54 Year
  Sex: Male

DRUGS (2)
  1. INTRON A [Suspect]
     Indication: HEPATIC NEOPLASM MALIGNANT
     Dosage: 6 MIU TIW INTRAMUSCULAR
     Route: 030
  2. FLUOROURACIL INJ [Suspect]
     Indication: HEPATIC NEOPLASM MALIGNANT
     Dosage: 500 MG QD INTRA-ART

REACTIONS (4)
  - ATROPHY [None]
  - CHOLECYSTITIS CHRONIC [None]
  - EFFUSION [None]
  - GALLBLADDER DISORDER [None]
